FAERS Safety Report 22591888 (Version 1)
Quarter: 2023Q2

REPORT INFORMATION
  Report Type: Spontaneous
  Country: US (occurrence: None)
  Receive Date: 20230612
  Receipt Date: 20230612
  Transmission Date: 20230721
  Serious: No
  Sender: FDA-Public Use
  Company Number: US-ROCHE-3121983

PATIENT
  Age: 80 Year
  Sex: Female
  Weight: 57.1 kg

DRUGS (2)
  1. TECENTRIQ [Suspect]
     Active Substance: ATEZOLIZUMAB
     Indication: Bladder transitional cell carcinoma
     Dosage: RECEIVED ATEZOLIZUMAB DOSE ON 16/MAY/2022,
     Route: 042
     Dates: start: 20220516, end: 20220606
  2. XANAX [Concomitant]
     Active Substance: ALPRAZOLAM
     Dosage: UNKNOWN

REACTIONS (22)
  - Chest pain [Not Recovered/Not Resolved]
  - Dyspnoea [Not Recovered/Not Resolved]
  - Neck pain [Not Recovered/Not Resolved]
  - Nausea [Unknown]
  - Dizziness [Unknown]
  - Vision blurred [Unknown]
  - Cough [Not Recovered/Not Resolved]
  - Gait disturbance [Unknown]
  - Headache [Not Recovered/Not Resolved]
  - Musculoskeletal stiffness [Recovered/Resolved]
  - Muscular weakness [Not Recovered/Not Resolved]
  - Hypoaesthesia [Not Recovered/Not Resolved]
  - Nervousness [Not Recovered/Not Resolved]
  - Rash [Unknown]
  - Muscle atrophy [Unknown]
  - Ill-defined disorder [Unknown]
  - Temporomandibular joint syndrome [Not Recovered/Not Resolved]
  - Weight decreased [Not Recovered/Not Resolved]
  - Diarrhoea [Not Recovered/Not Resolved]
  - Dropped head syndrome [Recovered/Resolved]
  - Back pain [Not Recovered/Not Resolved]
  - Arthritis [Unknown]

NARRATIVE: CASE EVENT DATE: 20220517
